FAERS Safety Report 24177079 (Version 1)
Quarter: 2024Q3

REPORT INFORMATION
  Report Type: Spontaneous
  Country: US (occurrence: US)
  Receive Date: 20240806
  Receipt Date: 20240806
  Transmission Date: 20241017
  Serious: Yes (Other)
  Sender: AMNEAL
  Company Number: US-AMNEAL-2023-AMRX-03048

PATIENT
  Age: 49 Year
  Sex: Male
  Weight: 125.62 kg

DRUGS (2)
  1. BACLOFEN [Suspect]
     Active Substance: BACLOFEN
     Indication: Product used for unknown indication
     Dosage: 1000MCG/200MCG
     Route: 037
  2. BACLOFEN [Suspect]
     Active Substance: BACLOFEN
     Dosage: 200 MICROGRAM, QD
     Route: 037

REACTIONS (4)
  - Muscle spasticity [Recovered/Resolved]
  - Device dislocation [Unknown]
  - Loss of therapeutic response [Unknown]
  - Device issue [Unknown]

NARRATIVE: CASE EVENT DATE: 20230824
